FAERS Safety Report 8694202 (Version 2)
Quarter: 2012Q4

REPORT INFORMATION
  Report Type: 
  Country: CA (occurrence: CA)
  Receive Date: 20120731
  Receipt Date: 20121011
  Transmission Date: 20130627
  Serious: Yes (Hospitalization)
  Sender: FDA-Public Use
  Company Number: CA-SANOFI-AVENTIS-2012SA051678

PATIENT
  Age: 61 Year
  Sex: Male
  Weight: 82 kg

DRUGS (4)
  1. LOVENOX [Suspect]
     Indication: DEEP VEIN THROMBOSIS
     Route: 058
     Dates: start: 20110419, end: 20110423
  2. LOVENOX [Suspect]
     Indication: PULMONARY EMBOLISM
     Route: 058
     Dates: start: 20110419, end: 20110423
  3. WARFARIN [Concomitant]
     Indication: DRUG USE FOR UNKNOWN INDICATION
  4. LEVAQUIN [Concomitant]
     Indication: DRUG USE FOR UNKNOWN INDICATION

REACTIONS (5)
  - Drug hypersensitivity [Recovered/Resolved]
  - Injection site cellulitis [Recovered/Resolved]
  - Injection site erythema [Recovered/Resolved]
  - Injection site urticaria [Recovered/Resolved]
  - Injection site vesicles [Recovered/Resolved]
